FAERS Safety Report 8170120-7 (Version None)
Quarter: 2012Q1

REPORT INFORMATION
  Report Type: 
  Country: None (occurrence: None)
  Receive Date: 20120228
  Receipt Date: 20120215
  Transmission Date: 20120608
  Serious: Yes (Other)
  Sender: FDA-Public Use
  Company Number: PHHY2012IN014002

PATIENT
  Age: 37 Year
  Sex: Male

DRUGS (6)
  1. CYCLOSPORINE [Suspect]
     Indication: APLASIA PURE RED CELL
  2. AZATHIOPRINE [Concomitant]
     Indication: APLASIA PURE RED CELL
  3. PREDNISOLONE [Concomitant]
     Indication: APLASIA PURE RED CELL
  4. ANTI-THYMOCYTE GLOBULIN EQUINE NOS [Suspect]
  5. MYCOPHENOLATE MOFETIL [Suspect]
     Indication: APLASIA PURE RED CELL
  6. DANAZOL [Suspect]
     Indication: APLASIA PURE RED CELL

REACTIONS (4)
  - APLASIA PURE RED CELL [None]
  - FATIGUE [None]
  - DISEASE RECURRENCE [None]
  - DIZZINESS [None]
